FAERS Safety Report 10897352 (Version 1)
Quarter: 2015Q1

REPORT INFORMATION
  Report Type: Spontaneous
  Country: US (occurrence: None)
  Receive Date: 20150302
  Receipt Date: 20150302
  Transmission Date: 20150721
  Serious: No
  Sender: FDA-Public Use
  Company Number: None

PATIENT
  Age: 47 Year
  Sex: Male
  Weight: 90.72 kg

DRUGS (3)
  1. TRAZODONE [Concomitant]
     Active Substance: TRAZODONE HYDROCHLORIDE
  2. BUPROPRION [Suspect]
     Active Substance: BUPROPION
     Indication: DEPRESSION
     Dosage: ONE PILL, QD, ORAL
     Route: 048
     Dates: start: 20150222, end: 20150226
  3. BUSPIRONE [Concomitant]
     Active Substance: BUSPIRONE HYDROCHLORIDE

REACTIONS (6)
  - Product quality issue [None]
  - Anxiety [None]
  - Product substitution issue [None]
  - Middle insomnia [None]
  - Gastric disorder [None]
  - Abdominal pain upper [None]

NARRATIVE: CASE EVENT DATE: 20150222
